FAERS Safety Report 19035005 (Version 2)
Quarter: 2022Q4

REPORT INFORMATION
  Report Type: Report from Study
  Country: US (occurrence: US)
  Receive Date: 20210320
  Receipt Date: 20221019
  Transmission Date: 20230112
  Serious: Yes (Other)
  Sender: FDA-Public Use
  Company Number: US-NOVARTISPH-NVSC2021US057644

PATIENT
  Age: 53 Year
  Sex: Male
  Weight: 84.6 kg

DRUGS (9)
  1. MAXIDEX [Suspect]
     Active Substance: DEXAMETHASONE
     Indication: Plasma cell myeloma
     Dosage: 20 MG, (DAY 1, 2)
     Route: 048
     Dates: start: 20201123
  2. MAXIDEX [Suspect]
     Active Substance: DEXAMETHASONE
     Dosage: 20 MG, QD (DAYS 8-9)
     Route: 065
     Dates: start: 20201201, end: 20201207
  3. CARFILZOMIB [Suspect]
     Active Substance: CARFILZOMIB
     Indication: Plasma cell myeloma
     Dosage: 39 MG
     Route: 042
     Dates: start: 20201123
  4. CARFILZOMIB [Suspect]
     Active Substance: CARFILZOMIB
     Dosage: 110 MG (DAYS 8,9,15,16)
     Route: 042
     Dates: start: 20201201, end: 20201207
  5. PANTOPRAZOLE [Concomitant]
     Active Substance: PANTOPRAZOLE
     Indication: Product used for unknown indication
     Dosage: 20 MG (1 IN 1 D)
     Route: 048
  6. ZOLPIDEM [Concomitant]
     Active Substance: ZOLPIDEM TARTRATE
     Indication: Product used for unknown indication
     Dosage: 5 MG, PRN
     Route: 048
     Dates: start: 20201130
  7. DICLOFENAC [Concomitant]
     Active Substance: DICLOFENAC
     Indication: Product used for unknown indication
     Dosage: UNK (1 APP, 4 IN 1 D)
     Route: 065
     Dates: start: 20201130
  8. ONDANSETRON [Concomitant]
     Active Substance: ONDANSETRON
     Indication: Product used for unknown indication
     Dosage: 12 MG, PRN
     Route: 048
  9. ACYCLOVIR [Concomitant]
     Active Substance: ACYCLOVIR
     Indication: Product used for unknown indication
     Dosage: 800 MG (2 IN 1 D)
     Route: 048

REACTIONS (8)
  - Sinus tachycardia [Not Recovered/Not Resolved]
  - Dyspnoea [Recovered/Resolved]
  - Diarrhoea [Unknown]
  - Depressed mood [Unknown]
  - Dysphagia [Unknown]
  - Fatigue [Unknown]
  - Palpitations [Unknown]
  - Chest discomfort [Unknown]

NARRATIVE: CASE EVENT DATE: 20201203
